FAERS Safety Report 5646138-2 (Version None)
Quarter: 2008Q1

REPORT INFORMATION
  Report Type: 
  Country: None (occurrence: None)
  Receive Date: 20080227
  Receipt Date: 20080213
  Transmission Date: 20080703
  Serious: Yes (Hospitalization)
  Sender: FDA-Public Use
  Company Number: B0509179A

PATIENT
  Age: 4 Month
  Sex: Female

DRUGS (3)
  1. PYRIMETHAMINE TAB [Suspect]
     Indication: CONGENITAL TOXOPLASMOSIS
     Dosage: 1 MG/KG / PER DAY /
  2. SULFADIAZINE [Suspect]
     Indication: CONGENITAL TOXOPLASMOSIS
     Dosage: 100 MG/KG / PER DAY /
  3. LEUCOVORIN CALCIUM [Concomitant]

REACTIONS (8)
  - ANAEMIA [None]
  - BONE MARROW FAILURE [None]
  - CHOREOATHETOSIS [None]
  - GRAND MAL CONVULSION [None]
  - INFECTION [None]
  - NEUTROPENIA [None]
  - NO THERAPEUTIC RESPONSE [None]
  - RESPIRATORY FAILURE [None]
